FAERS Safety Report 18494569 (Version 1)
Quarter: 2020Q4

REPORT INFORMATION
  Report Type: Spontaneous
  Country: NL (occurrence: NL)
  Receive Date: 20201112
  Receipt Date: 20201112
  Transmission Date: 20210114
  Serious: Yes (Hospitalization, Other)
  Sender: FDA-Public Use
  Company Number: NL-ACCORD-208139

PATIENT
  Age: 44 Year
  Sex: Male

DRUGS (8)
  1. MABTHERA [Concomitant]
     Active Substance: RITUXIMAB
     Dosage: STRENGTH: 10 MG / ML VIAL 10 ML
     Route: 065
  2. MYCOPHENOLIC ACID. [Suspect]
     Active Substance: MYCOPHENOLIC ACID
     Indication: PRODUCT USED FOR UNKNOWN INDICATION
  3. AZATHIOPRINE. [Suspect]
     Active Substance: AZATHIOPRINE
     Indication: IMMUNOSUPPRESSION
  4. PREDNISOLONE. [Suspect]
     Active Substance: PREDNISOLONE
     Indication: IMMUNOSUPPRESSION
  5. TACROLIMUS. [Suspect]
     Active Substance: TACROLIMUS
     Indication: IMMUNOSUPPRESSION
  6. DEPO-MEDROL [Suspect]
     Active Substance: METHYLPREDNISOLONE ACETATE
     Indication: IMMUNOSUPPRESSION
     Dosage: 3 DAYS OF 1000 MG ORAL, STRENGTH: 40 MG / ML VIAL 1 ML
     Route: 048
  7. METHYLPREDNISOLONE. [Suspect]
     Active Substance: METHYLPREDNISOLONE
     Indication: PRODUCT USED FOR UNKNOWN INDICATION
     Dosage: PULSE THERAPY (3 DAYS OF 1000 MG)
  8. BASILIXIMAB [Suspect]
     Active Substance: BASILIXIMAB
     Indication: IMMUNOSUPPRESSION

REACTIONS (8)
  - Musculoskeletal pain [Recovered/Resolved]
  - Sensory loss [Recovered/Resolved]
  - Muscular weakness [Recovered/Resolved]
  - Post transplant lymphoproliferative disorder [Recovered/Resolved]
  - Paralysis [Recovered/Resolved]
  - Transplant rejection [Recovering/Resolving]
  - Meningioma malignant [Recovered/Resolved]
  - Monoparesis [Recovering/Resolving]
